FAERS Safety Report 9455155 (Version 2)
Quarter: 2013Q3

REPORT INFORMATION
  Report Type: Spontaneous
  Country: IT (occurrence: IT)
  Receive Date: 20130813
  Receipt Date: 20130913
  Transmission Date: 20140515
  Serious: Yes (Life-Threatening, Hospitalization)
  Sender: FDA-Public Use
  Company Number: IT-ASTRAZENECA-2013SE61282

PATIENT
  Age: 1995 Week
  Sex: Male

DRUGS (6)
  1. SEROQUEL [Suspect]
     Indication: PSYCHOTIC DISORDER
     Route: 048
  2. SEROQUEL [Suspect]
     Indication: PSYCHOTIC DISORDER
     Route: 048
     Dates: start: 20130502, end: 20130802
  3. INVEGA [Suspect]
     Indication: PSYCHOTIC DISORDER
     Route: 065
  4. INVEGA [Suspect]
     Indication: PSYCHOTIC DISORDER
     Route: 065
     Dates: start: 20130502, end: 20130502
  5. DELORAZEPAM [Concomitant]
     Route: 048
  6. ENTUMIN [Concomitant]
     Dosage: 100MG/ML ORAL DROPS SOLUTION, 5 DROPS OF UNKNOWN FERQUENCY
     Route: 048

REACTIONS (6)
  - Overdose [Recovering/Resolving]
  - Acute respiratory failure [Recovering/Resolving]
  - Coma [Recovering/Resolving]
  - Pneumonia aspiration [Unknown]
  - Psychomotor hyperactivity [Recovering/Resolving]
  - Tachycardia [Recovering/Resolving]
